FAERS Safety Report 4637272-4 (Version None)
Quarter: 2005Q2

REPORT INFORMATION
  Report Type: 
  Country: None (occurrence: None)
  Receive Date: 20050418
  Receipt Date: 20050406
  Transmission Date: 20051028
  Serious: Yes (Hospitalization)
  Sender: FDA-Public Use
  Company Number: US-JNJFOC-20050400937

PATIENT
  Sex: Male
  Weight: 93.2 kg

DRUGS (29)
  1. BLINDED; INFLIXIMAB, RECOMBINANT [Suspect]
     Route: 042
  2. BLINDED; INFLIXIMAB, RECOMBINANT [Suspect]
     Route: 042
  3. BLINDED; INFLIXIMAB, RECOMBINANT [Suspect]
     Route: 042
  4. BLINDED; INFLIXIMAB, RECOMBINANT [Suspect]
     Route: 042
  5. PLACEBO [Suspect]
     Route: 042
  6. PLACEBO [Suspect]
     Route: 042
  7. PLACEBO [Suspect]
     Route: 042
  8. PLACEBO [Suspect]
     Route: 042
  9. IMURAN [Concomitant]
  10. PREDNISONE [Concomitant]
  11. MULTI-VITAMIN [Concomitant]
  12. MULTI-VITAMIN [Concomitant]
  13. MULTI-VITAMIN [Concomitant]
  14. MULTI-VITAMIN [Concomitant]
  15. MULTI-VITAMIN [Concomitant]
  16. MULTI-VITAMIN [Concomitant]
  17. MULTI-VITAMIN [Concomitant]
  18. MULTI-VITAMIN [Concomitant]
     Dosage: 1 DAILY
  19. OS-CAL [Concomitant]
  20. OS-CAL [Concomitant]
  21. ASACOL [Concomitant]
     Dosage: SIX TABLETS A DAY, TWICE DAILY
  22. VALIUM [Concomitant]
     Dosage: 10 MG AS NEEDED
  23. TYLENOL (CAPLET) [Concomitant]
     Dosage: AS NEEDED
  24. BENADRYL [Concomitant]
     Dosage: 25 MG TO 50 MG AS NEEDED
  25. AMBIEN [Concomitant]
     Dosage: 10 MG AS NEEDED
  26. LOMOTIL [Concomitant]
  27. LOMOTIL [Concomitant]
     Dosage: 2.5 MG THREE TIMES A DAY AS NEEDED
  28. NULEV [Concomitant]
     Dosage: AS NEEDED
  29. TRAMADOL HCL [Concomitant]
     Dosage: AS NEEDED

REACTIONS (3)
  - ABDOMINAL PAIN [None]
  - COLITIS ULCERATIVE [None]
  - VOMITING [None]
